FAERS Safety Report 25255908 (Version 2)
Quarter: 2025Q2

REPORT INFORMATION
  Report Type: Spontaneous
  Country: PK (occurrence: PK)
  Receive Date: 20250430
  Receipt Date: 20250627
  Transmission Date: 20250716
  Serious: Yes (Other)
  Sender: PFIZER
  Company Number: PK-PFIZER INC-PV202400123793

PATIENT
  Age: 35 Year
  Sex: Female
  Weight: 73 kg

DRUGS (17)
  1. RUXIENCE [Suspect]
     Active Substance: RITUXIMAB-PVVR
     Indication: Rheumatoid arthritis
     Route: 042
     Dates: start: 202409
  2. RUXIENCE [Suspect]
     Active Substance: RITUXIMAB-PVVR
     Indication: Thrombocytopenia
  3. RUXIENCE [Suspect]
     Active Substance: RITUXIMAB-PVVR
     Indication: Autoimmune haemolytic anaemia
  4. HYDROXYCHLOROQUINE SULFATE [Concomitant]
     Active Substance: HYDROXYCHLOROQUINE SULFATE
     Dosage: 200 MG, 2X/DAY (1-0-1-0) AFTER MEAL
  5. MYFORTIC [Concomitant]
     Active Substance: MYCOPHENOLATE SODIUM
     Dosage: UNK, 2X/DAY (1-0-1)
  6. OCTINOXATE AND OCTOCRYLENE [Concomitant]
     Active Substance: ENSULIZOLE\OCTINOXATE\OCTOCRYLENE\TITANIUM DIOXIDE
     Dosage: UNK, 4X/DAY (SOLARIS ULTRA 60 SUN BLOCK, APPLY LOCALLY 4XDAY)
     Route: 061
  7. CAC [Concomitant]
     Dosage: UNK, 1X/DAY (CAC 1000 PLUS (0-1-0-0), ORANGE FLAVOUR)
  8. ESSO [Concomitant]
     Dosage: UNK, 1X/DAY (1-0-0-0), BEFORE MEAL
  9. DELTACORTRIL [Concomitant]
     Active Substance: PREDNISOLONE
  10. DELTACORTRIL [Concomitant]
     Active Substance: PREDNISOLONE
  11. DELTACORTRIL [Concomitant]
     Active Substance: PREDNISOLONE
     Dosage: UNK, 1X/DAY (1-0-0-0 (AFTER MEAL) EC)
  12. VITAMAX [VITAMINS NOS] [Concomitant]
     Dosage: 1 DF, 1X/DAY
  13. IMOGRAF [Concomitant]
     Dosage: 1 MG, 2X/DAY (1+0+1+0, AFTER MEAL)
  14. H2F [Concomitant]
  15. ESCITALOPRAM OXALATE [Concomitant]
     Active Substance: ESCITALOPRAM OXALATE
  16. FOLIC ACID [Concomitant]
     Active Substance: FOLIC ACID
     Dosage: 5 MG, 1X/DAY
  17. PANADOL [Concomitant]
     Active Substance: ACETAMINOPHEN

REACTIONS (9)
  - Systemic lupus erythematosus [Unknown]
  - Red blood cell sedimentation rate increased [Unknown]
  - Mean cell volume decreased [Unknown]
  - Migraine [Unknown]
  - Haemoglobin decreased [Unknown]
  - Anxiety [Unknown]
  - Headache [Unknown]
  - Off label use [Unknown]
  - Off label use [Unknown]

NARRATIVE: CASE EVENT DATE: 20240901
